FAERS Safety Report 6301724-1 (Version None)
Quarter: 2009Q3

REPORT INFORMATION
  Report Type: 
  Country: None (occurrence: None)
  Receive Date: 20090805
  Receipt Date: 20090721
  Transmission Date: 20100115
  Serious: Yes (Other)
  Sender: FDA-Public Use
  Company Number: 8036289

PATIENT
  Age: 38 Year
  Sex: Female
  Weight: 65 kg

DRUGS (1)
  1. XOZAL [Suspect]
     Indication: RHINITIS ALLERGIC
     Dosage: 5 MG 1/D PO
     Route: 048
     Dates: start: 20080710, end: 20080711

REACTIONS (5)
  - BREAST PAIN [None]
  - DRUG EXPOSURE DURING PREGNANCY [None]
  - INDUCED LABOUR [None]
  - PREGNANCY [None]
  - PREMATURE LABOUR [None]
